FAERS Safety Report 5872165-6 (Version None)
Quarter: 2008Q3

REPORT INFORMATION
  Report Type: 
  Country: None (occurrence: None)
  Receive Date: 20080902
  Receipt Date: 20080130
  Transmission Date: 20090109
  Serious: Yes (Other)
  Sender: FDA-Public Use
  Company Number: 2008S1001249

PATIENT
  Age: 58 Year
  Sex: Male

DRUGS (5)
  1. PHOSPHORAL (SODIUM PHOSPHATE DIBASIC/SODIUM PHOSPHATE MONOBASIC (ANHYD [Suspect]
     Indication: COLONOSCOPY
     Dosage: 45 ML; BID PO, 45 ML; 169; PO; BID
     Route: 048
     Dates: start: 20060606, end: 20060608
  2. NOVOMIX 30 FLEXPEN (BEING QUERIED) [Concomitant]
  3. ALBYL-E [Concomitant]
  4. CARVEDILOL [Concomitant]
  5. LIPITOR [Concomitant]

REACTIONS (6)
  - ANOREXIA [None]
  - DIABETES MELLITUS INADEQUATE CONTROL [None]
  - DIARRHOEA [None]
  - NAUSEA [None]
  - RENAL FAILURE [None]
  - VOMITING [None]
